FAERS Safety Report 23339176 (Version 2)
Quarter: 2025Q1

REPORT INFORMATION
  Report Type: Spontaneous
  Country: US (occurrence: US)
  Receive Date: 20231226
  Receipt Date: 20250212
  Transmission Date: 20250408
  Serious: No
  Sender: BIOGEN
  Company Number: US-BIOGEN-2023BI01239982

PATIENT
  Sex: Female

DRUGS (7)
  1. VUMERITY [Suspect]
     Active Substance: DIROXIMEL FUMARATE
     Indication: Multiple sclerosis
     Route: 050
     Dates: start: 20210914
  2. VUMERITY [Suspect]
     Active Substance: DIROXIMEL FUMARATE
     Dosage: TAKE 2 CAPSULES BY MOUTH TWICE A DAY
     Route: 050
  3. BACLOFEN [Concomitant]
     Active Substance: BACLOFEN
     Route: 050
  4. MODAFINIL [Concomitant]
     Active Substance: MODAFINIL
     Route: 050
  5. FAMOTIDINE [Concomitant]
     Active Substance: FAMOTIDINE
     Route: 050
  6. PANTOPRAZOLE [Concomitant]
     Active Substance: PANTOPRAZOLE
     Route: 050
  7. SODIUM [Concomitant]
     Active Substance: SODIUM
     Route: 050

REACTIONS (3)
  - Intentional product misuse [Unknown]
  - Vertigo [Unknown]
  - Flushing [Unknown]
